FAERS Safety Report 18884964 (Version 1)
Quarter: 2021Q1

REPORT INFORMATION
  Report Type: Spontaneous
  Country: US (occurrence: US)
  Receive Date: 20210212
  Receipt Date: 20210212
  Transmission Date: 20210420
  Serious: No
  Sender: FDA-Public Use
  Company Number: None

PATIENT
  Age: 67 Year
  Sex: Male
  Weight: 127.35 kg

DRUGS (15)
  1. ATORVASTATIN 20MG [Concomitant]
     Active Substance: ATORVASTATIN
  2. FINASTERIDE 5MG [Concomitant]
     Active Substance: FINASTERIDE
  3. METOPROLOL SUCCINATE ER 50MG [Concomitant]
  4. NABUMETONE 750MG [Concomitant]
  5. TRAMADOL 50MG [Concomitant]
     Active Substance: TRAMADOL
  6. ASPIRIN 81MG [Concomitant]
     Active Substance: ASPIRIN
  7. FISH OIL OMEGA?3 1000MG [Concomitant]
  8. GLYBURIDE 5MG [Concomitant]
  9. CAPECITABINE. [Suspect]
     Active Substance: CAPECITABINE
     Indication: COLON CANCER
     Route: 048
     Dates: start: 20210119
  10. FERROUS SULFATE 325MG [Concomitant]
     Active Substance: FERROUS SULFATE
  11. TAMSULOSIN 0.4MG [Concomitant]
     Active Substance: TAMSULOSIN
  12. LEVOTHYROXINE 125MCG [Concomitant]
     Active Substance: LEVOTHYROXINE SODIUM
  13. METFORMIN 500MG [Concomitant]
     Active Substance: METFORMIN HYDROCHLORIDE
  14. LOSARTAN?HCTZ 100?25MG [Concomitant]
  15. ONDANSETRON [Concomitant]
     Active Substance: ONDANSETRON

REACTIONS (1)
  - Blood potassium decreased [None]

NARRATIVE: CASE EVENT DATE: 20210211
